FAERS Safety Report 23970705 (Version 1)
Quarter: 2024Q2

REPORT INFORMATION
  Report Type: Report from Study
  Country: US (occurrence: US)
  Receive Date: 20240613
  Receipt Date: 20240613
  Transmission Date: 20240716
  Serious: Yes (Other)
  Sender: FDA-Public Use
  Company Number: US-ABBVIE-5790004

PATIENT
  Age: 65 Year
  Sex: Female
  Weight: 54 kg

DRUGS (1)
  1. RINVOQ [Suspect]
     Active Substance: UPADACITINIB
     Indication: Crohn^s disease
     Dosage: 30 MILLIGRAM
     Route: 048
     Dates: start: 202309, end: 20240527

REACTIONS (8)
  - Chondrocalcinosis [Recovering/Resolving]
  - Anal fissure [Not Recovered/Not Resolved]
  - Therapeutic product effect decreased [Not Recovered/Not Resolved]
  - Anal inflammation [Unknown]
  - Adverse drug reaction [Unknown]
  - Diarrhoea [Recovering/Resolving]
  - Skin ulcer [Recovering/Resolving]
  - Large intestinal stenosis [Unknown]

NARRATIVE: CASE EVENT DATE: 20230901
